FAERS Safety Report 9285049 (Version 1)
Quarter: 2013Q2

REPORT INFORMATION
  Report Type: Spontaneous
  Country: US (occurrence: US)
  Receive Date: 20130513
  Receipt Date: 20130513
  Transmission Date: 20140414
  Serious: Yes (Other)
  Sender: FDA-Public Use
  Company Number: US-JNJFOC-20130505383

PATIENT
  Age: 5 Decade
  Sex: Female
  Weight: 56.7 kg

DRUGS (1)
  1. INVOKANA [Suspect]
     Indication: TYPE 1 DIABETES MELLITUS
     Route: 048

REACTIONS (5)
  - Mental status changes [Unknown]
  - Delusion [Unknown]
  - Hallucination, auditory [Unknown]
  - Intentional drug misuse [Unknown]
  - Sticky skin [Unknown]
